FAERS Safety Report 6223465-1 (Version None)
Quarter: 2009Q2

REPORT INFORMATION
  Report Type: 
  Country: None (occurrence: None)
  Receive Date: 20090611
  Receipt Date: 20090605
  Transmission Date: 20091009
  Serious: Yes (Hospitalization)
  Sender: FDA-Public Use
  Company Number: -BAXTER-2009BH009602

PATIENT
  Age: 45 Year
  Sex: Male
  Weight: 154 kg

DRUGS (5)
  1. ROBAXIN [Suspect]
     Indication: MUSCLE SPASMS
     Route: 065
     Dates: start: 20090409, end: 20090410
  2. VANCOMYCIN HCL [Suspect]
     Indication: STAPHYLOCOCCAL INFECTION
     Route: 065
     Dates: start: 20090409
  3. PERCOCET [Suspect]
     Indication: PAIN MANAGEMENT
     Route: 065
     Dates: start: 20090409, end: 20090415
  4. OXYCONTIN [Suspect]
     Indication: PAIN MANAGEMENT
     Route: 065
     Dates: start: 20090409, end: 20090415
  5. BLINDED STUDY MEDICATION [Suspect]
     Indication: THROMBOSIS PROPHYLAXIS
     Route: 065
     Dates: start: 20090202, end: 20090302

REACTIONS (2)
  - HALLUCINATION [None]
  - MALAISE [None]
